FAERS Safety Report 22389540 (Version 1)
Quarter: 2023Q2

REPORT INFORMATION
  Report Type: Spontaneous
  Country: CA (occurrence: CA)
  Receive Date: 20230531
  Receipt Date: 20230531
  Transmission Date: 20230722
  Serious: Yes (Death)
  Sender: FDA-Public Use
  Company Number: CA-HLS-202301100

PATIENT
  Age: 31 Year
  Sex: Male
  Weight: 61 kg

DRUGS (1)
  1. CLOZARIL [Suspect]
     Active Substance: CLOZAPINE
     Indication: Psychotic disorder
     Dosage: 1 EVERY 1 DAYS?AMOUNT: 325 MILLIGRAM?TABLETS DOSAGE FORM
     Route: 048

REACTIONS (3)
  - Brain injury [Fatal]
  - Generalised tonic-clonic seizure [Fatal]
  - Resuscitation [Fatal]
